FAERS Safety Report 12527679 (Version 2)
Quarter: 2016Q3

REPORT INFORMATION
  Report Type: Spontaneous
  Country: FR (occurrence: FR)
  Receive Date: 20160705
  Receipt Date: 20160706
  Transmission Date: 20161109
  Serious: Yes (Hospitalization)
  Sender: FDA-Public Use
  Company Number: PHHY2016FR090751

PATIENT
  Age: 27 Year
  Sex: Male

DRUGS (22)
  1. EMEND [Concomitant]
     Active Substance: APREPITANT
     Indication: PROPHYLAXIS OF NAUSEA AND VOMITING
     Dosage: 80 MG, UNK
     Route: 048
     Dates: start: 20160222
  2. DOXORUBICIN [Suspect]
     Active Substance: DOXORUBICIN
     Dosage: 150 MG, PER COURSE
     Route: 042
     Dates: start: 20160404
  3. DOXORUBICIN [Suspect]
     Active Substance: DOXORUBICIN
     Dosage: 150 MG, PER COURSE
     Route: 042
     Dates: start: 20160517
  4. MESNA. [Suspect]
     Active Substance: MESNA
     Indication: PROPHYLAXIS
     Dosage: 500 MG/M2 PER COURSE
     Route: 042
  5. PREZISTA [Concomitant]
     Active Substance: DARUNAVIR ETHANOLATE
     Indication: PRODUCT USED FOR UNKNOWN INDICATION
     Route: 065
  6. DOXORUBICIN [Suspect]
     Active Substance: DOXORUBICIN
     Indication: SARCOMA
     Dosage: 150 MG, PER COURSE
     Route: 042
     Dates: start: 20160222
  7. IFOSFAMIDE. [Suspect]
     Active Substance: IFOSFAMIDE
     Dosage: 10000 MG, PER COURSE
     Route: 042
     Dates: start: 20160425
  8. IFOSFAMIDE. [Suspect]
     Active Substance: IFOSFAMIDE
     Dosage: 10000 MG, PER COURSE
     Route: 042
     Dates: start: 20160606
  9. TRUVADA [Concomitant]
     Active Substance: EMTRICITABINE\TENOFOVIR DISOPROXIL FUMARATE
     Indication: ACQUIRED IMMUNODEFICIENCY SYNDROME
     Dosage: 200 MG, QD
     Route: 048
     Dates: start: 20160225
  10. DOXORUBICIN [Suspect]
     Active Substance: DOXORUBICIN
     Dosage: 150 MG, PER COURSE
     Route: 042
     Dates: start: 20160314
  11. IFOSFAMIDE. [Suspect]
     Active Substance: IFOSFAMIDE
     Dosage: 10000 MG, PER COURSE
     Route: 042
     Dates: start: 20160314
  12. NORVIR [Concomitant]
     Active Substance: RITONAVIR
     Indication: PRODUCT USED FOR UNKNOWN INDICATION
     Route: 065
  13. DOXORUBICIN [Suspect]
     Active Substance: DOXORUBICIN
     Dosage: 150 MG, PER COURSE
     Route: 042
     Dates: start: 20160606
  14. IFOSFAMIDE. [Suspect]
     Active Substance: IFOSFAMIDE
     Dosage: 10000 MG, PER COURSE
     Route: 042
     Dates: start: 20160404
  15. DOXORUBICIN [Suspect]
     Active Substance: DOXORUBICIN
     Dosage: 150 MG, PER COURSE
     Route: 042
     Dates: start: 20160425
  16. IFOSFAMIDE. [Suspect]
     Active Substance: IFOSFAMIDE
     Dosage: 10000 MG, PER COURSE
     Route: 042
     Dates: start: 20160517
  17. METHYLPREDNISOLONE. [Suspect]
     Active Substance: METHYLPREDNISOLONE
     Indication: PROPHYLAXIS OF NAUSEA AND VOMITING
     Dosage: 80 MG, UNK
     Route: 042
     Dates: start: 20160222
  18. LYRICA [Concomitant]
     Active Substance: PREGABALIN
     Indication: PAIN
     Dosage: 200 MG, BID
     Route: 048
     Dates: start: 201601
  19. BACTRIM [Concomitant]
     Active Substance: SULFAMETHOXAZOLE\TRIMETHOPRIM
     Indication: PROPHYLAXIS
     Dosage: 1 DF, QW3
     Route: 048
     Dates: start: 20160225
  20. ZOPHREN [Suspect]
     Active Substance: ONDANSETRON
     Indication: PROPHYLAXIS OF NAUSEA AND VOMITING
     Dosage: 8 MG, QD
     Route: 042
     Dates: start: 20160222
  21. IFOSFAMIDE. [Suspect]
     Active Substance: IFOSFAMIDE
     Indication: SARCOMA
     Dosage: 10000 MG, PER COURSE
     Route: 042
     Dates: start: 20160222
  22. ISENTRESS [Concomitant]
     Active Substance: RALTEGRAVIR POTASSIUM
     Indication: ACQUIRED IMMUNODEFICIENCY SYNDROME
     Dosage: 2 DF, QD
     Route: 048
     Dates: start: 20160225

REACTIONS (1)
  - Somnolence [Recovered/Resolved]

NARRATIVE: CASE EVENT DATE: 20160606
